FAERS Safety Report 9705338 (Version 1)
Quarter: 2013Q4

REPORT INFORMATION
  Report Type: Spontaneous
  Country: US (occurrence: US)
  Receive Date: 20131122
  Receipt Date: 20131122
  Transmission Date: 20140711
  Serious: Yes (Other)
  Sender: FDA-Public Use
  Company Number: US-OTSUKA-US-2013-12197

PATIENT
  Sex: 0

DRUGS (2)
  1. ABILIFY MAINTENA [Suspect]
     Indication: PSYCHOTIC DISORDER
     Dosage: UNK
  2. ABILIFY [Concomitant]
     Indication: PSYCHOTIC DISORDER
     Dosage: UNK

REACTIONS (2)
  - Psychotic disorder [Unknown]
  - Off label use [Unknown]
